FAERS Safety Report 8053979-3 (Version None)
Quarter: 2012Q1

REPORT INFORMATION
  Report Type: 
  Country: None (occurrence: None)
  Receive Date: 20120118
  Receipt Date: 20120109
  Transmission Date: 20120608
  Serious: Yes (Hospitalization)
  Sender: FDA-Public Use
  Company Number: FR-ASTRAZENECA-2012SE02067

PATIENT
  Age: 31135 Day
  Sex: Female

DRUGS (6)
  1. DIGOXIN [Concomitant]
     Route: 048
  2. CITALOPRAM HYDROBROMIDE [Suspect]
     Route: 048
  3. PREDNISONE TAB [Suspect]
     Route: 048
  4. MYCOPHENOLATE MOFETIL (CELLCEPT) [Suspect]
     Route: 048
     Dates: end: 20100921
  5. NEXIUM [Suspect]
     Route: 048
  6. CALCIUM CARBONATE [Concomitant]

REACTIONS (3)
  - RECTAL HAEMORRHAGE [None]
  - MELAENA [None]
  - ANAEMIA [None]
